FAERS Safety Report 21818685 (Version 1)
Quarter: 2023Q1

REPORT INFORMATION
  Report Type: Spontaneous
  Country: US (occurrence: US)
  Receive Date: 20230104
  Receipt Date: 20230104
  Transmission Date: 20230417
  Serious: No
  Sender: FDA-Public Use
  Company Number: US-PFIZER INC-PV202200133040

PATIENT
  Age: 8 Year
  Sex: Male
  Weight: 27.22 kg

DRUGS (1)
  1. GENOTROPIN [Suspect]
     Active Substance: SOMATROPIN
     Indication: Noonan syndrome
     Dosage: 1.5 MG, DAILY

REACTIONS (3)
  - COVID-19 [Unknown]
  - Off label use [Unknown]
  - Expired device used [Unknown]

NARRATIVE: CASE EVENT DATE: 20221227
